FAERS Safety Report 17602309 (Version 1)
Quarter: 2020Q1

REPORT INFORMATION
  Report Type: Spontaneous
  Country: FR (occurrence: FR)
  Receive Date: 20200331
  Receipt Date: 20200331
  Transmission Date: 20200409
  Serious: Yes (Other)
  Sender: FDA-Public Use
  Company Number: FR-SUN PHARMACEUTICAL INDUSTRIES LTD-2020RR-242188

PATIENT
  Age: 1 Year
  Sex: Male

DRUGS (3)
  1. CODOLIPRANE 500 MG/30 MG, GELULE [Suspect]
     Active Substance: ACETAMINOPHEN\CODEINE PHOSPHATE
     Indication: DRUG ABUSER
     Dosage: 2 DOSAGE FORM, DAILY
     Route: 063
     Dates: start: 20200123
  2. SERESTA 10 MG, COMPRIME [Suspect]
     Active Substance: OXAZEPAM
     Indication: DRUG ABUSER
     Dosage: 40 MILLIGRAM, DAILY
     Route: 063
     Dates: start: 20200123
  3. TRAMADOL. [Suspect]
     Active Substance: TRAMADOL
     Indication: DRUG ABUSER
     Dosage: 100 MILLIGRAM, DAILY
     Route: 063
     Dates: start: 2019

REACTIONS (1)
  - Weaning failure [Not Recovered/Not Resolved]

NARRATIVE: CASE EVENT DATE: 202001
